FAERS Safety Report 5022958-2 (Version None)
Quarter: 2006Q2

REPORT INFORMATION
  Report Type: 
  Country: None (occurrence: None)
  Receive Date: 20060426
  Receipt Date: 20060317
  Transmission Date: 20061013
  Serious: Yes (Other)
  Sender: FDA-Public Use
  Company Number: 2006039567

PATIENT
  Age: 76 Year
  Sex: Male
  Weight: 77.5651 kg

DRUGS (2)
  1. LYRICA [Suspect]
     Indication: DIABETIC NEUROPATHY
     Dosage: 758 MG (75 MG, 1 IN 1 D), ORAL
     Route: 048
     Dates: start: 20060301
  2. VALIUM [Suspect]
     Indication: ANXIETY
     Dosage: 5 MG(5 MG, 1 IN 1 D), ORAL
     Route: 048
     Dates: end: 20060301

REACTIONS (8)
  - BACK PAIN [None]
  - DRUG LEVEL INCREASED [None]
  - DYSPNOEA [None]
  - MALAISE [None]
  - MYALGIA [None]
  - NEURALGIA [None]
  - PARAESTHESIA [None]
  - UNEVALUABLE EVENT [None]
